FAERS Safety Report 21359606 (Version 1)
Quarter: 2022Q3

REPORT INFORMATION
  Report Type: Spontaneous
  Country: DE (occurrence: DE)
  Receive Date: 20220921
  Receipt Date: 20220921
  Transmission Date: 20221027
  Serious: Yes (Hospitalization, Other)
  Sender: FDA-Public Use
  Company Number: None

PATIENT
  Age: 72 Year
  Sex: Male
  Weight: 70 kg

DRUGS (16)
  1. PREGABALIN [Interacting]
     Active Substance: PREGABALIN
     Dosage: 25 MG, 2X/DAY, 1-0-1-0
     Route: 048
  2. RAMIPRIL [Suspect]
     Active Substance: RAMIPRIL
     Dosage: 5 MG, PAUSED
     Route: 048
  3. XIPAMIDE [Suspect]
     Active Substance: XIPAMIDE
     Dosage: 10 MG, 1X/DAY,1-0-0-0
     Route: 048
  4. METFORMIN [Interacting]
     Active Substance: METFORMIN HYDROCHLORIDE
     Dosage: 500 MG, 2X/DAY, 1-0-1-0
     Route: 048
  5. CITRIC ACID MONOHYDRATE\POTASSIUM BICARBONATE\POTASSIUM CITRATE [Concomitant]
     Active Substance: CITRIC ACID MONOHYDRATE\POTASSIUM BICARBONATE\POTASSIUM CITRATE
     Dosage: UNK
     Route: 048
  6. ALBUTEROL [Concomitant]
     Active Substance: ALBUTEROL
     Dosage: UNK UNK, AS NEEDED
     Route: 055
  7. METOCLOPRAMIDE [Concomitant]
     Active Substance: METOCLOPRAMIDE
     Dosage: 10 MG, 3X/DAY,1-1-1-0
     Route: 048
  8. LAXANS-RATIOPHARM PICO [Concomitant]
     Dosage: 20 DROP, 2X/DAY, 20-20-0-0
     Route: 048
  9. ATORVASTATIN [Concomitant]
     Active Substance: ATORVASTATIN
     Dosage: 10 MG, 1X/DAY, 0-0-1-0
     Route: 048
  10. MOVICOL [Concomitant]
     Active Substance: POLYETHYLENE GLYCOL 3350\POTASSIUM CHLORIDE\SODIUM BICARBONATE\SODIUM CHLORIDE
     Dosage: 1 DF, 1X/DAY, 1-0-0-0, POWDER
     Route: 048
  11. ASPIRIN [Concomitant]
     Active Substance: ASPIRIN
     Dosage: 100 MG, 1X/DAY, 0-1-0-0
     Route: 048
  12. GLYCOPYRRONIUM\INDACATEROL [Concomitant]
     Active Substance: GLYCOPYRRONIUM\INDACATEROL
     Dosage: UNK UNK, 1X/DAY, 1-0-0-0
     Route: 055
  13. TAMSULOSIN [Concomitant]
     Active Substance: TAMSULOSIN
     Dosage: 0.4 MG, 1X/DAY, 0-0-1-0
     Route: 048
  14. NALOXONE HYDROCHLORIDE\TILIDINE HYDROCHLORIDE [Concomitant]
     Active Substance: NALOXONE HYDROCHLORIDE\TILIDINE HYDROCHLORIDE
     Dosage: UNK UNK, 3X/DAY, 1-1-1-0
     Route: 048
  15. METAMIZOLE [Concomitant]
     Active Substance: METAMIZOLE
     Dosage: 40 DROP, 4X/DAY, 40-40-40-40
     Route: 048
  16. PANTOPRAZOLE [Concomitant]
     Active Substance: PANTOPRAZOLE
     Dosage: 40 MG, 2X/DAY, 1-0-1-0
     Route: 048

REACTIONS (11)
  - Dehydration [Unknown]
  - Vomiting [Unknown]
  - General physical health deterioration [Unknown]
  - Product monitoring error [Unknown]
  - Pain [Unknown]
  - Abdominal pain [Unknown]
  - Labelled drug-drug interaction medication error [Unknown]
  - Nausea [Unknown]
  - Acute kidney injury [Unknown]
  - Haematocrit decreased [Unknown]
  - C-reactive protein increased [Unknown]
